FAERS Safety Report 5654185-X (Version None)
Quarter: 2008Q1

REPORT INFORMATION
  Report Type: 
  Country: None (occurrence: None)
  Receive Date: 20080306
  Receipt Date: 20070417
  Transmission Date: 20080703
  Serious: No
  Sender: FDA-Public Use
  Company Number: US-BOEHRINGER INGELHEIM GMBH, GERMANY-2007-BP-02655BP

PATIENT
  Sex: Male

DRUGS (6)
  1. FLOMAX [Suspect]
     Indication: BENIGN PROSTATIC HYPERPLASIA
  2. PROSCAR [Concomitant]
  3. WELLBUTRIN [Concomitant]
  4. PAXIL [Concomitant]
  5. ALLOPURINOL [Concomitant]
  6. ZOCOR [Concomitant]

REACTIONS (2)
  - EJACULATION DISORDER [None]
  - SEMEN VOLUME DECREASED [None]
